FAERS Safety Report 6486912-6 (Version None)
Quarter: 2009Q4

REPORT INFORMATION
  Report Type: 
  Country: None (occurrence: None)
  Receive Date: 20091209
  Receipt Date: 20091209
  Transmission Date: 20100525
  Serious: Yes (Life-Threatening, Hospitalization)
  Sender: FDA-Public Use
  Company Number: None

PATIENT
  Age: 50 Year
  Sex: Female
  Weight: 68.0396 kg

DRUGS (2)
  1. CYMBALTA [Suspect]
     Indication: BIPOLAR DISORDER
     Dosage: 60 MGS 1 X DAY PO
     Route: 048
     Dates: start: 19950115, end: 19970115
  2. CYMBALTA [Suspect]
     Indication: DEPRESSION
     Dosage: 60 MGS 1 X DAY PO
     Route: 048
     Dates: start: 19950115, end: 19970115

REACTIONS (5)
  - DEATH OF RELATIVE [None]
  - LOSS OF EMPLOYMENT [None]
  - OBSESSIVE THOUGHTS [None]
  - SUICIDAL IDEATION [None]
  - SUICIDE ATTEMPT [None]
